FAERS Safety Report 7147466-4 (Version None)
Quarter: 2010Q4

REPORT INFORMATION
  Report Type: 
  Country: None (occurrence: None)
  Receive Date: 20101209
  Receipt Date: 20101130
  Transmission Date: 20110411
  Serious: Yes (Hospitalization, Other)
  Sender: FDA-Public Use
  Company Number: US-BIOGENIDEC-2010BI023389

PATIENT
  Age: 50 Year
  Sex: Female

DRUGS (1)
  1. TYSABRI [Suspect]
     Indication: MULTIPLE SCLEROSIS
     Route: 042
     Dates: start: 20060920, end: 20100401

REACTIONS (11)
  - CONVULSION [None]
  - COORDINATION ABNORMAL [None]
  - DIABETES MELLITUS [None]
  - DRY MOUTH [None]
  - GAIT DISTURBANCE [None]
  - IMPAIRED HEALING [None]
  - MEMORY IMPAIRMENT [None]
  - MUSCULOSKELETAL STIFFNESS [None]
  - PAIN [None]
  - STAPHYLOCOCCAL SKIN INFECTION [None]
  - TOOTH DISORDER [None]
